FAERS Safety Report 11803337 (Version 1)
Quarter: 2015Q4

REPORT INFORMATION
  Report Type: Spontaneous
  Country: JP (occurrence: JP)
  Receive Date: 20151204
  Receipt Date: 20151204
  Transmission Date: 20160305
  Serious: Yes (Other)
  Sender: FDA-Public Use
  Company Number: JP-PFIZER INC-2015337414

PATIENT
  Age: 69 Year
  Sex: Male

DRUGS (8)
  1. LYRICA [Interacting]
     Active Substance: PREGABALIN
     Dosage: 75 MG, 2X/DAY  (IN THE MORNING AND EVENING)
     Route: 048
     Dates: start: 20150721, end: 20150802
  2. LYRICA [Suspect]
     Active Substance: PREGABALIN
     Indication: BACK PAIN
     Dosage: 75 MG, 2X/DAY (IN THE MORNING AND EVENING)
     Route: 048
     Dates: start: 20150706, end: 20150712
  3. KALLIDINOGENASE [Interacting]
     Active Substance: KALLIDINOGENASE
     Dosage: 3 TABLETS
     Route: 048
     Dates: start: 20150901
  4. AMLODIPINE BESILATE [Interacting]
     Active Substance: AMLODIPINE BESYLATE
     Dosage: 5 MG, 1X/DAY (IN THE MORNING)
     Route: 048
     Dates: start: 2000, end: 20150819
  5. LYRICA [Interacting]
     Active Substance: PREGABALIN
     Indication: HYPERAESTHESIA
     Dosage: 150 MG, 2X/DAY (IN THE MORNING AND EVENING)
     Route: 048
     Dates: start: 20150713, end: 20150720
  6. LYRICA [Interacting]
     Active Substance: PREGABALIN
     Dosage: 150 MG, 2X/DAY  (IN THE MORNING AND EVENING)
     Route: 048
     Dates: start: 20150803, end: 20151005
  7. LYRICA [Interacting]
     Active Substance: PREGABALIN
     Dosage: 75 MG, 1X/DAY (IN THE EVENING)
     Route: 048
     Dates: start: 20151006
  8. GLACTIV [Interacting]
     Active Substance: SITAGLIPTIN
     Indication: DIABETES MELLITUS
     Dosage: 25 MG, 1X/DAY (IN THE MORNING)
     Route: 048
     Dates: start: 20150428

REACTIONS (6)
  - Rash [Not Recovered/Not Resolved]
  - Conjunctival haemorrhage [Unknown]
  - Zinc deficiency [Unknown]
  - Drug interaction [Unknown]
  - Hypogeusia [Not Recovered/Not Resolved]
  - Eyelid bleeding [Unknown]

NARRATIVE: CASE EVENT DATE: 201507
